FAERS Safety Report 4643289-6 (Version None)
Quarter: 2005Q2

REPORT INFORMATION
  Report Type: 
  Country: None (occurrence: None)
  Receive Date: 20050422
  Receipt Date: 20050411
  Transmission Date: 20051028
  Serious: Yes (Other)
  Sender: FDA-Public Use
  Company Number: 200511156BCC

PATIENT
  Age: 50 Year
  Sex: Female
  Weight: 92.9874 kg

DRUGS (6)
  1. MIDOL [Suspect]
     Indication: DYSMENORRHOEA
     Dates: start: 20050318
  2. SINGULAIR [Concomitant]
  3. ZYRTEC [Concomitant]
  4. PAMPRIN TAB [Concomitant]
  5. ALLEGRA [Concomitant]
  6. PROVENTIL [Concomitant]

REACTIONS (7)
  - ANAEMIA [None]
  - ANXIETY [None]
  - BLOOD PRESSURE SYSTOLIC INCREASED [None]
  - CHEST PAIN [None]
  - DIZZINESS [None]
  - FEELING ABNORMAL [None]
  - OVERDOSE [None]
